FAERS Safety Report 4594680-8 (Version None)
Quarter: 2005Q1

REPORT INFORMATION
  Report Type: 
  Country: None (occurrence: None)
  Receive Date: 20050301
  Receipt Date: 20041214
  Transmission Date: 20050727
  Serious: Yes (Disabling)
  Sender: FDA-Public Use
  Company Number: US-BRISTOL-MYERS SQUIBB COMPANY-12795159

PATIENT
  Age: 59 Year
  Sex: Female

DRUGS (6)
  1. ERBITUX [Suspect]
     Indication: COLON CANCER METASTATIC
     Route: 042
     Dates: start: 20041130
  2. ALOXI [Concomitant]
     Indication: PREMEDICATION
     Dates: start: 20041130
  3. ATROPINE [Concomitant]
     Indication: PREMEDICATION
     Dates: start: 20041130
  4. BENADRYL [Concomitant]
     Indication: PREMEDICATION
     Dates: start: 20041130
  5. DEXAMETHASONE [Concomitant]
     Indication: PREMEDICATION
     Dates: start: 20041130
  6. IRINOTECAN HCL [Concomitant]

REACTIONS (1)
  - PNEUMONITIS [None]
